FAERS Safety Report 4797859-5 (Version None)
Quarter: 2005Q4

REPORT INFORMATION
  Report Type: 
  Country: None (occurrence: None)
  Receive Date: 20051013
  Receipt Date: 20051005
  Transmission Date: 20060501
  Serious: Yes (Disabling)
  Sender: FDA-Public Use
  Company Number: US-MERCK-0510USA05417

PATIENT
  Age: 35 Year
  Sex: Female

DRUGS (3)
  1. VIOXX [Suspect]
     Indication: MUSCULOSKELETAL DISORDER
     Route: 048
     Dates: start: 20000101
  2. BEXTRA [Suspect]
     Indication: INTERVERTEBRAL DISC DEGENERATION
     Route: 048
     Dates: start: 20030101
  3. BEXTRA [Suspect]
     Indication: MUSCLE SPASMS
     Route: 048
     Dates: start: 20030101

REACTIONS (8)
  - ASTHENIA [None]
  - CARDIOVASCULAR DISORDER [None]
  - DEPRESSIVE SYMPTOM [None]
  - FATIGUE [None]
  - HYPOAESTHESIA [None]
  - OEDEMA PERIPHERAL [None]
  - PAIN IN EXTREMITY [None]
  - RENAL DISORDER [None]
